FAERS Safety Report 15295202 (Version 1)
Quarter: 2018Q3

REPORT INFORMATION
  Report Type: Spontaneous
  Country: US (occurrence: US)
  Receive Date: 20180820
  Receipt Date: 20180820
  Transmission Date: 20181010
  Serious: No
  Sender: FDA-Public Use
  Company Number: US-SUNOVION-2018SUN003164

PATIENT
  Age: 70 Year
  Sex: Male
  Weight: 104.31 kg

DRUGS (1)
  1. XOPENEX [Suspect]
     Active Substance: LEVALBUTEROL HYDROCHLORIDE
     Indication: ASTHMA
     Dosage: UNK, ONCE A MONTH/ PRN
     Route: 055

REACTIONS (5)
  - Expired product administered [Unknown]
  - Off label use [Unknown]
  - Foreign body in respiratory tract [Recovered/Resolved]
  - Medication error [Unknown]
  - Cough [Recovered/Resolved]

NARRATIVE: CASE EVENT DATE: 201807
